FAERS Safety Report 4584753-8 (Version None)
Quarter: 2005Q1

REPORT INFORMATION
  Report Type: 
  Country: None (occurrence: None)
  Receive Date: 20050214
  Receipt Date: 20050131
  Transmission Date: 20050727
  Serious: Yes (Other)
  Sender: FDA-Public Use
  Company Number: 2005008522

PATIENT
  Sex: Female
  Weight: 60.782 kg

DRUGS (2)
  1. BEXTRA [Suspect]
     Indication: RHEUMATOID ARTHRITIS
     Dosage: 40 MG (40 MG, 1 IN 1 D); ORAL
     Route: 048
     Dates: start: 20030601, end: 20041115
  2. HYDROXYCHLOROQUINE PHOSPHATE [Concomitant]

REACTIONS (2)
  - RASH ERYTHEMATOUS [None]
  - STEVENS-JOHNSON SYNDROME [None]
